FAERS Safety Report 12349666 (Version 7)
Quarter: 2016Q4

REPORT INFORMATION
  Report Type: Report from Study
  Country: AU (occurrence: AU)
  Receive Date: 20160510
  Receipt Date: 20161230
  Transmission Date: 20170207
  Serious: Yes (Hospitalization)
  Sender: FDA-Public Use
  Company Number: AU-ROCHE-1750673

PATIENT
  Age: 71 Year
  Sex: Male

DRUGS (56)
  1. NEULASTA [Concomitant]
     Active Substance: PEGFILGRASTIM
     Indication: PROPHYLAXIS
     Route: 065
     Dates: start: 20160424, end: 20160424
  2. FRUSEMIDE [Concomitant]
     Active Substance: FUROSEMIDE
     Dosage: BIPDEAL OEDEMA
     Route: 065
     Dates: start: 20160402, end: 20160402
  3. ONDANSETRON [Concomitant]
     Active Substance: ONDANSETRON
     Indication: NAUSEA
     Route: 065
     Dates: start: 20160402, end: 20160402
  4. METRONIDAZOLE. [Concomitant]
     Active Substance: METRONIDAZOLE
     Indication: CLOSTRIDIUM DIFFICILE COLITIS
     Route: 065
     Dates: start: 20160405, end: 20160409
  5. METRONIDAZOLE. [Concomitant]
     Active Substance: METRONIDAZOLE
     Route: 065
     Dates: start: 20160406, end: 20160623
  6. NIVESTIM [Concomitant]
     Active Substance: FILGRASTIM
     Indication: PROPHYLAXIS
     Route: 065
     Dates: start: 20160404, end: 20160404
  7. ENOXAPARIN [Concomitant]
     Active Substance: ENOXAPARIN
     Route: 065
     Dates: start: 20160411, end: 20160417
  8. FLECATAB [Concomitant]
     Indication: ATRIAL FIBRILLATION
     Route: 065
     Dates: start: 2011
  9. PARACETAMOL [Concomitant]
     Active Substance: ACETAMINOPHEN
     Indication: BACK PAIN
  10. AUGMENTIN DUO FORTE [Concomitant]
     Active Substance: AMOXICILLIN\CLAVULANATE POTASSIUM
     Indication: UPPER RESPIRATORY TRACT INFECTION
     Route: 065
     Dates: start: 20160403, end: 20160408
  11. HYDROCORTISONE. [Concomitant]
     Active Substance: HYDROCORTISONE
     Route: 065
     Dates: start: 20160502, end: 20160502
  12. BACTRIM [Concomitant]
     Active Substance: SULFAMETHOXAZOLE\TRIMETHOPRIM
     Indication: ANTIFUNGAL PROPHYLAXIS
     Route: 065
     Dates: start: 20160415
  13. CIPROFLOXACIN. [Concomitant]
     Active Substance: CIPROFLOXACIN
     Route: 065
     Dates: start: 20160408, end: 20160415
  14. NIVESTIM [Concomitant]
     Active Substance: FILGRASTIM
     Route: 065
     Dates: start: 20160408, end: 20160413
  15. VENETOCLAX [Suspect]
     Active Substance: VENETOCLAX
     Indication: NON-HODGKIN^S LYMPHOMA
     Dosage: DATE OF LAST DOSE ON 01/MAY/2016 AT 800MG
     Route: 048
     Dates: start: 20160404
  16. ENOXAPARIN [Concomitant]
     Active Substance: ENOXAPARIN
     Route: 065
     Dates: start: 20160402, end: 20160405
  17. CARTIA (AUSTRALIA) [Concomitant]
     Indication: ATRIAL FIBRILLATION
     Route: 065
     Dates: start: 2011
  18. FILGRASTIM [Concomitant]
     Active Substance: FILGRASTIM
     Indication: PROPHYLAXIS
     Route: 065
     Dates: start: 20160404, end: 20160404
  19. TEMAZEPAM. [Concomitant]
     Active Substance: TEMAZEPAM
     Indication: INSOMNIA
     Route: 065
     Dates: start: 20160331, end: 20160402
  20. HYDROCORTISONE. [Concomitant]
     Active Substance: HYDROCORTISONE
     Indication: ADRENAL INSUFFICIENCY
     Route: 065
     Dates: start: 20160428, end: 20160502
  21. LACTULOSE. [Concomitant]
     Active Substance: LACTULOSE
     Indication: CONSTIPATION
     Route: 065
     Dates: start: 20160430
  22. OMNIPAQUE [Concomitant]
     Active Substance: IOHEXOL
     Route: 065
     Dates: start: 20160503, end: 20160503
  23. CYCLOPHOSPHAMIDE. [Suspect]
     Active Substance: CYCLOPHOSPHAMIDE
     Indication: NON-HODGKIN^S LYMPHOMA
     Dosage: MOST RECENT DOSE PRIOR TO SAE ON 22/APR/2016 (1380 MG) AT 15:30
     Route: 042
     Dates: start: 20160401
  24. ENDEP [Concomitant]
     Active Substance: AMITRIPTYLINE HYDROCHLORIDE
     Indication: MUSCULOSKELETAL PAIN
  25. RASBURICASE [Concomitant]
     Active Substance: RASBURICASE
     Indication: NEOPLASM PROPHYLAXIS
     Route: 065
     Dates: start: 20160403, end: 20160403
  26. PACKED RED BLOOD CELLS [Concomitant]
     Active Substance: HUMAN RED BLOOD CELL
     Indication: ANAEMIA
     Route: 065
     Dates: start: 20160502, end: 20160503
  27. ENOXAPARIN [Concomitant]
     Active Substance: ENOXAPARIN
     Route: 065
     Dates: start: 20160331, end: 20160402
  28. ENOXAPARIN [Concomitant]
     Active Substance: ENOXAPARIN
     Indication: THROMBOSIS PROPHYLAXIS
     Route: 065
     Dates: start: 20160331, end: 20160402
  29. ENDONE [Concomitant]
     Active Substance: OXYCODONE HYDROCHLORIDE
     Indication: MUSCULOSKELETAL PAIN
  30. TARGIN [Concomitant]
     Active Substance: NALOXONE HYDROCHLORIDE\OXYCODONE HYDROCHLORIDE
     Indication: BACK PAIN
     Route: 065
     Dates: start: 20160316
  31. RANITIDINE. [Concomitant]
     Active Substance: RANITIDINE
     Route: 065
     Dates: start: 20160419
  32. COLOXYL WITH SENNA [Concomitant]
     Active Substance: DOCUSATE\SENNOSIDES
     Indication: CONSTIPATION
     Route: 065
     Dates: start: 20160313, end: 20160415
  33. METRONIDAZOLE. [Concomitant]
     Active Substance: METRONIDAZOLE
     Indication: DIVERTICULAR PERFORATION
     Route: 065
     Dates: start: 20160502, end: 20160505
  34. VANCOMYCIN [Concomitant]
     Active Substance: VANCOMYCIN
     Indication: CLOSTRIDIUM DIFFICILE INFECTION
     Route: 065
     Dates: start: 20160408, end: 20160415
  35. RITUXIMAB [Suspect]
     Active Substance: RITUXIMAB
     Indication: NON-HODGKIN^S LYMPHOMA
     Dosage: MOST RECENT DOSE PRIOR TO SAE ON 22/APR/2016 (690 MG) AT 11:40
     Route: 042
     Dates: start: 20160401
  36. VINCRISTINE [Suspect]
     Active Substance: VINCRISTINE
     Indication: NON-HODGKIN^S LYMPHOMA
     Dosage: MOST RECENT DOSE PRIOR TO SAE ON 22/APR/2016 (2 MG) AT 15:15
     Route: 042
     Dates: start: 20160401
  37. RANITIDINE. [Concomitant]
     Active Substance: RANITIDINE
     Indication: GASTROOESOPHAGEAL REFLUX DISEASE
     Route: 065
     Dates: start: 20160321, end: 20160408
  38. PARACETAMOL [Concomitant]
     Active Substance: ACETAMINOPHEN
     Indication: MUSCULOSKELETAL PAIN
     Route: 065
     Dates: start: 20160402
  39. CIPROFLOXACIN. [Concomitant]
     Active Substance: CIPROFLOXACIN
     Indication: FEBRILE NEUTROPENIA
     Route: 065
     Dates: start: 20160502, end: 20160505
  40. PREDNISONE. [Concomitant]
     Active Substance: PREDNISONE
     Indication: ADRENAL INSUFFICIENCY
     Route: 065
     Dates: start: 20160504, end: 20160505
  41. PREDNISONE. [Suspect]
     Active Substance: PREDNISONE
     Indication: NON-HODGKIN^S LYMPHOMA
     Dosage: MOST RECENT DOSE PRIOR TO SAE ON 26/APR/2016 (100 MG)
     Route: 048
     Dates: start: 20160401
  42. ENDONE [Concomitant]
     Active Substance: OXYCODONE HYDROCHLORIDE
     Indication: BACK PAIN
     Route: 065
     Dates: start: 20160316
  43. MAXOLON [Concomitant]
     Active Substance: METOCLOPRAMIDE HYDROCHLORIDE
     Indication: PROPHYLAXIS
     Route: 065
     Dates: start: 20160402
  44. METRONIDAZOLE. [Concomitant]
     Active Substance: METRONIDAZOLE
     Route: 065
     Dates: start: 20160409, end: 20160502
  45. ALLOPURINOL. [Concomitant]
     Active Substance: ALLOPURINOL
     Indication: PROPHYLAXIS
     Route: 065
     Dates: start: 20160329, end: 20160409
  46. ALLOPURINOL. [Concomitant]
     Active Substance: ALLOPURINOL
     Route: 065
     Dates: start: 20160419, end: 20160513
  47. SANDOZ PHOSPHATE [Concomitant]
     Indication: PROPHYLAXIS
     Route: 065
     Dates: start: 20160414, end: 20160414
  48. DOXORUBICIN [Suspect]
     Active Substance: DOXORUBICIN
     Indication: NON-HODGKIN^S LYMPHOMA
     Dosage: MOST RECENT DOSE PRIOR TO SAE ON 22/APR/2016 (92 MG) AT 15
     Route: 042
     Dates: start: 20160401
  49. TARGIN [Concomitant]
     Active Substance: NALOXONE HYDROCHLORIDE\OXYCODONE HYDROCHLORIDE
     Indication: MUSCULOSKELETAL PAIN
  50. ENDEP [Concomitant]
     Active Substance: AMITRIPTYLINE HYDROCHLORIDE
     Indication: BACK PAIN
     Route: 065
     Dates: start: 20160316, end: 20160623
  51. PANTOPRAZOLE [Concomitant]
     Active Substance: PANTOPRAZOLE SODIUM
     Indication: GASTROOESOPHAGEAL REFLUX DISEASE
     Route: 065
     Dates: start: 20160321, end: 20160419
  52. ONDANSETRON [Concomitant]
     Active Substance: ONDANSETRON
     Indication: NAUSEA
     Route: 065
     Dates: start: 20160408
  53. TEMAZEPAM. [Concomitant]
     Active Substance: TEMAZEPAM
     Route: 065
     Dates: start: 20160504
  54. TAMSULOSIN [Concomitant]
     Active Substance: TAMSULOSIN
     Indication: BENIGN PROSTATIC HYPERPLASIA
     Route: 065
     Dates: start: 20160411
  55. LACTULOSE. [Concomitant]
     Active Substance: LACTULOSE
     Indication: CONSTIPATION PROPHYLAXIS
     Route: 065
     Dates: start: 20160418
  56. VANCOMYCIN [Concomitant]
     Active Substance: VANCOMYCIN
     Indication: FEBRILE NEUTROPENIA
     Route: 065
     Dates: start: 20160502, end: 20160505

REACTIONS (2)
  - Oral herpes [Recovered/Resolved]
  - Oral candidiasis [Recovered/Resolved]

NARRATIVE: CASE EVENT DATE: 20160428
